FAERS Safety Report 24181041 (Version 1)
Quarter: 2024Q3

REPORT INFORMATION
  Report Type: Spontaneous
  Country: US (occurrence: US)
  Receive Date: 20240806
  Receipt Date: 20240806
  Transmission Date: 20241016
  Serious: Yes (Other)
  Sender: ORGANON
  Company Number: US-ORGANON-O2408USA000370

PATIENT
  Age: 30 Year
  Sex: Female

DRUGS (2)
  1. NEXPLANON [Suspect]
     Active Substance: ETONOGESTREL
     Dosage: 68 MG, 1 IMPLANT (LEFT UPPER ARM)
     Route: 059
     Dates: start: 2022
  2. NEXPLANON [Suspect]
     Active Substance: ETONOGESTREL
     Dosage: 68 MG, 1 IMPLANT (LEFT UPPER ARM)
     Route: 059

REACTIONS (2)
  - Device expulsion [Recovered/Resolved]
  - Intentional medical device removal by patient [Unknown]
